FAERS Safety Report 16897997 (Version 2)
Quarter: 2019Q4

REPORT INFORMATION
  Report Type: Spontaneous
  Country: JP (occurrence: JP)
  Receive Date: 20191009
  Receipt Date: 20191028
  Transmission Date: 20200122
  Serious: Yes (Other)
  Sender: FDA-Public Use
  Company Number: JP-PFIZER INC-2019426786

PATIENT
  Age: 11 Year
  Sex: Male

DRUGS (3)
  1. L-ISOPRENALINE HYDROCHLORIDE [Suspect]
     Active Substance: LEVISOPRENALINE HYDROCHLORIDE
     Indication: CARDIAC ABLATION
     Dosage: UNK, 1X/DAY
     Route: 042
     Dates: start: 20180424
  2. PROTAMINE [Suspect]
     Active Substance: PROTAMINE
     Indication: CARDIAC ABLATION
     Dosage: 30 MG, 1X/DAY
     Route: 042
     Dates: start: 20180424
  3. PRECEDEX [Suspect]
     Active Substance: DEXMEDETOMIDINE HYDROCHLORIDE
     Indication: CARDIAC ABLATION
     Dosage: 0.5 UG/KG/H FOR 4 HOURS, 1X/DAY
     Route: 042
     Dates: start: 20180424, end: 20180424

REACTIONS (7)
  - Haematocrit decreased [Unknown]
  - White blood cell count decreased [Unknown]
  - Blood pressure decreased [Unknown]
  - Lymphocyte percentage increased [Unknown]
  - Neutrophil percentage decreased [Unknown]
  - Haemoglobin decreased [Unknown]
  - Platelet count decreased [Unknown]

NARRATIVE: CASE EVENT DATE: 20180424
